FAERS Safety Report 18037191 (Version 2)
Quarter: 2021Q2

REPORT INFORMATION
  Report Type: Spontaneous
  Country: US (occurrence: US)
  Receive Date: 20200717
  Receipt Date: 20210511
  Transmission Date: 20210717
  Serious: Yes (Other)
  Sender: FDA-Public Use
  Company Number: US-SA-2020SA184327

PATIENT
  Age: 62 Year
  Sex: Male

DRUGS (2)
  1. ZANTAC [Suspect]
     Active Substance: RANITIDINE HYDROCHLORIDE
     Indication: GASTROOESOPHAGEAL REFLUX DISEASE
     Dosage: 75 MG, QD
     Dates: start: 201501
  2. ZANTAC [Suspect]
     Active Substance: RANITIDINE HYDROCHLORIDE
     Indication: DYSPEPSIA
     Dosage: 150 MG, QD
     Dates: end: 201907

REACTIONS (4)
  - Lung carcinoma cell type unspecified stage IV [Unknown]
  - Renal cancer stage IV [Unknown]
  - Prostate cancer [Unknown]
  - Bladder cancer [Unknown]

NARRATIVE: CASE EVENT DATE: 201810
